FAERS Safety Report 7444317-5 (Version None)
Quarter: 2011Q2

REPORT INFORMATION
  Report Type: 
  Country: None (occurrence: None)
  Receive Date: 20110429
  Receipt Date: 20110418
  Transmission Date: 20111010
  Serious: Yes (Death, Hospitalization)
  Sender: FDA-Public Use
  Company Number: US-JNJFOC-20110406273

PATIENT

DRUGS (4)
  1. DOXORUBICIN HCL [Suspect]
     Route: 042
  2. DOXORUBICIN HCL [Suspect]
     Indication: NEOPLASM MALIGNANT
     Route: 042
  3. TRIAPIN [Suspect]
     Indication: NEOPLASM MALIGNANT
     Route: 042
  4. TRIAPIN [Suspect]
     Route: 042

REACTIONS (3)
  - CARDIAC FAILURE [None]
  - DYSPNOEA [None]
  - NEUTROPENIA [None]
